FAERS Safety Report 23660792 (Version 2)
Quarter: 2024Q2

REPORT INFORMATION
  Report Type: Other
  Country: US (occurrence: US)
  Receive Date: 20240322
  Receipt Date: 20240408
  Transmission Date: 20240716
  Serious: Yes (Hospitalization, Other)
  Sender: FDA-Public Use
  Company Number: US-INTERCEPT-PM2024000065

PATIENT
  Age: 53 Year
  Sex: Female

DRUGS (24)
  1. OCALIVA [Suspect]
     Active Substance: OBETICHOLIC ACID
     Indication: Primary biliary cholangitis
     Dosage: 5 MILLIGRAM, QD
     Route: 048
     Dates: start: 20160923
  2. OCALIVA [Suspect]
     Active Substance: OBETICHOLIC ACID
     Dosage: 10 MILLIGRAM, QD
     Route: 048
     Dates: end: 20171027
  3. OCALIVA [Suspect]
     Active Substance: OBETICHOLIC ACID
     Dosage: 5 MILLIGRAM, QD
     Route: 048
     Dates: start: 20230615, end: 2023
  4. OCALIVA [Suspect]
     Active Substance: OBETICHOLIC ACID
     Dosage: 5 MILLIGRAM, QD
     Route: 048
     Dates: start: 2023
  5. OCALIVA [Suspect]
     Active Substance: OBETICHOLIC ACID
     Dosage: 5 MILLIGRAM, QD
     Route: 048
  6. ACTIGALL [Suspect]
     Active Substance: URSODIOL
     Indication: Primary biliary cholangitis
     Dosage: 500 MG, BID (1000 MG DAILY)
     Route: 048
  7. AMIODARONE [Concomitant]
     Active Substance: AMIODARONE
  8. NORVASC [Concomitant]
     Active Substance: AMLODIPINE BESYLATE
     Dosage: 5 MILLIGRAM, BID, TAKE 2 TABLETS (10 MG) BY MOUTH DAILY
     Route: 048
  9. LIPITOR [Concomitant]
     Active Substance: ATORVASTATIN CALCIUM
     Dosage: 80 MILLIGRAM, QD
     Route: 048
  10. LIPITOR [Concomitant]
     Active Substance: ATORVASTATIN CALCIUM
     Dosage: 40 MILLIGRAM, QD
     Route: 048
  11. COREG [Concomitant]
     Active Substance: CARVEDILOL
     Dosage: 12.5 MILLIGRAM, QD
     Route: 048
  12. ZYRTEC [Concomitant]
     Active Substance: CETIRIZINE HYDROCHLORIDE
     Dosage: 10 MILLIGRAM, QD
     Route: 048
  13. CORTISONE [Concomitant]
     Active Substance: CORTISONE
  14. LANTUS SOLOSTAR [Concomitant]
     Active Substance: INSULIN GLARGINE
     Dosage: 100 UNIT/ML PEN SYRINGE, INJECT 16 UNITS BY  SUBCUTANEOUS INJECTION DAILY WITH BREAKFAST
     Route: 058
  15. NOVOLOG [Concomitant]
     Active Substance: INSULIN ASPART
  16. ASPIRIN [Concomitant]
     Active Substance: ASPIRIN
  17. DIAZEPAM [Concomitant]
     Active Substance: DIAZEPAM
  18. FENOFIBRATE [Concomitant]
     Active Substance: FENOFIBRATE
  19. HUMALOG KWIKPEN [Concomitant]
     Active Substance: INSULIN LISPRO
     Dosage: 100 UNIT/ML PEN SYRINGE, GIVE 4 UNITS OF NOVOLOG - 15  MINUTES SUBCUTANEOUSLY BEFORE BREAKFAST AND L
     Route: 058
  20. ATROVENT [Concomitant]
     Active Substance: IPRATROPIUM BROMIDE
     Dosage: 4.2 MICROGRAM, BID
     Route: 045
  21. CANNABIS SATIVA SUBSP. INDICA TOP [Concomitant]
     Active Substance: CANNABIS SATIVA SUBSP. INDICA TOP
     Dosage: UNK
     Route: 045
  22. PRINIVIL [Concomitant]
     Active Substance: LISINOPRIL
     Dosage: 5 MILLIGRAM, QD
     Route: 048
  23. BAYER ASPIRIN [Concomitant]
     Active Substance: ASPIRIN
     Dosage: 81 MILLIGRAM, QD
     Route: 048
  24. NITROSTAT [Concomitant]
     Active Substance: NITROGLYCERIN
     Dosage: 0.4 MILLIGRAM, PLACE 0.4 MG UNDER TONGUE EVERY 5 MINUTES AS NEEDED
     Route: 060

REACTIONS (15)
  - Vertigo [Unknown]
  - Cerebrovascular accident [Not Recovered/Not Resolved]
  - Hepatic fibrosis [Unknown]
  - Cholelithiasis [Unknown]
  - Arthrodesis [Recovered/Resolved]
  - Medical device removal [Recovered/Resolved]
  - Open reduction of fracture [Recovered/Resolved]
  - Cholestasis [Unknown]
  - Gamma-glutamyltransferase increased [Not Recovered/Not Resolved]
  - Blood alkaline phosphatase increased [Not Recovered/Not Resolved]
  - Aspartate aminotransferase increased [Not Recovered/Not Resolved]
  - Alanine aminotransferase increased [Not Recovered/Not Resolved]
  - Pruritus [Not Recovered/Not Resolved]
  - Fatigue [Unknown]
  - Product dose omission issue [Recovered/Resolved]

NARRATIVE: CASE EVENT DATE: 20180327
